FAERS Safety Report 5025675-8 (Version None)
Quarter: 2006Q2

REPORT INFORMATION
  Report Type: 
  Country: None (occurrence: None)
  Receive Date: 20060614
  Receipt Date: 20060607
  Transmission Date: 20061013
  Serious: Yes (Other)
  Sender: FDA-Public Use
  Company Number: PHNR2006AU00806

PATIENT
  Age: 63 Year
  Sex: Male

DRUGS (4)
  1. MYCOPHENOLATE MOFETIL [Concomitant]
  2. NEORAL [Suspect]
     Indication: RENAL TRANSPLANT
  3. DILTIAZEM [Concomitant]
  4. CERTICAN [Suspect]
     Indication: RENAL TRANSPLANT

REACTIONS (3)
  - ARRHYTHMIA [None]
  - CHEST DISCOMFORT [None]
  - TACHYCARDIA [None]
